FAERS Safety Report 4945728-X (Version None)
Quarter: 2006Q1

REPORT INFORMATION
  Report Type: 
  Country: None (occurrence: None)
  Receive Date: 20060117
  Receipt Date: 20050407
  Transmission Date: 20060701
  Serious: Yes (Hospitalization)
  Sender: FDA-Public Use
  Company Number: A03300501038

PATIENT
  Age: 77 Year
  Sex: Female
  Weight: 78.4723 kg

DRUGS (4)
  1. PLAVIX [Suspect]
     Indication: ANTICOAGULANT THERAPY
     Dosage: 75 MG QD ORAL
     Route: 048
     Dates: start: 20041201, end: 20041201
  2. PLAVIX [Suspect]
     Indication: CARDIOVASCULAR DISORDER
     Dosage: 75 MG QD ORAL
     Route: 048
     Dates: start: 20041201, end: 20041201
  3. PROPRANOLOL HYDROCHLORIDE [Concomitant]
  4. LISINOPRIL [Concomitant]

REACTIONS (5)
  - ANOREXIA [None]
  - ASTHENIA [None]
  - FAECES DISCOLOURED [None]
  - HAEMOGLOBIN DECREASED [None]
  - HAEMORRHAGE [None]
